FAERS Safety Report 7713339-9 (Version None)
Quarter: 2011Q3

REPORT INFORMATION
  Report Type: 
  Country: None (occurrence: None)
  Receive Date: 20110826
  Receipt Date: 20110823
  Transmission Date: 20111222
  Serious: Yes (Hospitalization)
  Sender: FDA-Public Use
  Company Number: CHPA2011NO03561

PATIENT
  Sex: Female

DRUGS (3)
  1. OTRIVIN [Suspect]
     Dosage: 1-3 TIMES DAILY
     Route: 045
     Dates: start: 20110227
  2. OTRIVIN COMP [Suspect]
     Indication: NASAL CONGESTION
     Dosage: APPROXIMATELY TWO TIMES DAILY
     Route: 045
     Dates: start: 20110227, end: 20110301
  3. SODIUM CHLORIDE [Suspect]
     Dosage: UNK, UNK
     Route: 065

REACTIONS (6)
  - ANTEPARTUM HAEMORRHAGE [None]
  - PREMATURE LABOUR [None]
  - MATERNAL EXPOSURE DURING PREGNANCY [None]
  - PRE-ECLAMPSIA [None]
  - HYPERTENSION [None]
  - DRUG ADMINISTRATION ERROR [None]
